FAERS Safety Report 15120933 (Version 12)
Quarter: 2020Q4

REPORT INFORMATION
  Report Type: Spontaneous
  Country: US (occurrence: US)
  Receive Date: 20180709
  Receipt Date: 20201103
  Transmission Date: 20210113
  Serious: Yes (Hospitalization)
  Sender: FDA-Public Use
  Company Number: US-SA-2018SA178199

PATIENT

DRUGS (4)
  1. DUPIXENT [Suspect]
     Active Substance: DUPILUMAB
     Dosage: 300 MG, QOW
     Route: 058
     Dates: start: 201802
  2. DUPIXENT [Suspect]
     Active Substance: DUPILUMAB
     Indication: PRODUCT USED FOR UNKNOWN INDICATION
     Dosage: 600 MG, 1X
     Route: 058
     Dates: start: 20180215, end: 20180215
  3. DUPIXENT [Suspect]
     Active Substance: DUPILUMAB
     Dosage: 300 MG, QOW
     Route: 058
     Dates: start: 201903
  4. DUPIXENT [Suspect]
     Active Substance: DUPILUMAB
     Dosage: 300 MG, QOW
     Route: 058
     Dates: start: 201803

REACTIONS (14)
  - Fall [Unknown]
  - Lower limb fracture [Unknown]
  - Vomiting [Unknown]
  - Product dose omission issue [Unknown]
  - Head injury [Unknown]
  - Localised infection [Unknown]
  - Rash [Unknown]
  - Hypotension [Unknown]
  - Pyrexia [Unknown]
  - Adrenal disorder [Unknown]
  - Blood sodium decreased [Unknown]
  - Peripheral swelling [Unknown]
  - Condition aggravated [Unknown]
  - Eye irritation [Unknown]

NARRATIVE: CASE EVENT DATE: 20180615
